FAERS Safety Report 16707055 (Version 1)
Quarter: 2019Q3

REPORT INFORMATION
  Report Type: Spontaneous
  Country: US (occurrence: US)
  Receive Date: 20190815
  Receipt Date: 20190815
  Transmission Date: 20191004
  Serious: No
  Sender: FDA-Public Use
  Company Number: US-THERAPEUTICSMD-2019TMD01621

PATIENT
  Age: 49 Year
  Sex: Female
  Weight: 55.33 kg

DRUGS (1)
  1. BIJUVA [Suspect]
     Active Substance: ESTRADIOL\PROGESTERONE
     Indication: HOT FLUSH
     Dosage: 1 CAPSULES, 1X/DAY
     Route: 048
     Dates: start: 20190610, end: 20190619

REACTIONS (5)
  - Hot flush [Recovering/Resolving]
  - Weight increased [Recovering/Resolving]
  - Night sweats [Recovering/Resolving]
  - Feeling hot [Recovering/Resolving]
  - Drug ineffective [Recovered/Resolved]

NARRATIVE: CASE EVENT DATE: 201906
